FAERS Safety Report 24788232 (Version 1)
Quarter: 2024Q4

REPORT INFORMATION
  Report Type: Spontaneous
  Country: FR (occurrence: FR)
  Receive Date: 20241230
  Receipt Date: 20241230
  Transmission Date: 20250115
  Serious: Yes (Other)
  Sender: BAXTER
  Company Number: None

PATIENT
  Age: 36 Year
  Sex: Female

DRUGS (6)
  1. CYCLOPHOSPHAMIDE [Suspect]
     Active Substance: CYCLOPHOSPHAMIDE
     Indication: Triple negative breast cancer
     Dosage: 4 CYCLICAL (4 CURES), DURATION: 67 DAYS
     Route: 042
     Dates: start: 20240809, end: 20241015
  2. KEYTRUDA [Suspect]
     Active Substance: PEMBROLIZUMAB
     Indication: Triple negative breast cancer
     Dosage: 4 CYCLICAL, DURATION: 63 DAYS
     Route: 042
     Dates: start: 20240517, end: 20240719
  3. KEYTRUDA [Suspect]
     Active Substance: PEMBROLIZUMAB
     Dosage: 4 CYCLICAL, DURATION: 67 DAYS
     Route: 042
     Dates: start: 20240809, end: 20241015
  4. CARBOPLATIN [Suspect]
     Active Substance: CARBOPLATIN
     Indication: Triple negative breast cancer
     Dosage: 4 CYCLICAL, DURATION: 63 DAYS
     Route: 042
     Dates: start: 20240517, end: 20240719
  5. PACLITAXEL [Suspect]
     Active Substance: PACLITAXEL
     Indication: Triple negative breast cancer
     Dosage: 4 CYCLICAL, DURATION: 63 DAYS
     Route: 042
     Dates: start: 20240517, end: 20240719
  6. DOXORUBICIN [Suspect]
     Active Substance: DOXORUBICIN
     Indication: Triple negative breast cancer
     Dosage: 240 MG/M2, 4 CURES, DURATION: 67 DAYS
     Route: 042
     Dates: start: 20240809, end: 20241015

REACTIONS (2)
  - Troponin increased [Not Recovered/Not Resolved]
  - Immune-mediated myocarditis [Not Recovered/Not Resolved]

NARRATIVE: CASE EVENT DATE: 20241206
